FAERS Safety Report 6546321-8 (Version None)
Quarter: 2010Q1

REPORT INFORMATION
  Report Type: 
  Country: None (occurrence: None)
  Receive Date: 20100122
  Receipt Date: 20100115
  Transmission Date: 20100710
  Serious: Yes (Hospitalization)
  Sender: FDA-Public Use
  Company Number: US-ROCHE-680177

PATIENT
  Sex: Female
  Weight: 60 kg

DRUGS (8)
  1. PEG-INTERFERON ALFA 2A (RO 25-8310) [Suspect]
     Indication: HEPATITIS C
     Dosage: LAST DOSE PRIOR TO SAE: 01 JANUARY 2010.
     Route: 058
     Dates: start: 20090821
  2. RIBAVIRIN [Suspect]
     Indication: HEPATITIS C
     Route: 048
     Dates: start: 20090821
  3. DURAGESIC-100 [Concomitant]
     Dates: start: 20080101
  4. ZYPREXA [Concomitant]
     Dates: start: 20080101
  5. LAMICTAL [Concomitant]
     Dates: start: 20080101
  6. BC POWDER [Concomitant]
     Dates: start: 20030101
  7. NEXIUM [Concomitant]
     Dates: start: 20090101
  8. NEUPOGEN [Concomitant]
     Dates: start: 20091130

REACTIONS (1)
  - HYPOKALAEMIA [None]
